FAERS Safety Report 9928214 (Version 1)
Quarter: 2014Q1

REPORT INFORMATION
  Report Type: Spontaneous
  Country: US (occurrence: US)
  Receive Date: 20140227
  Receipt Date: 20140227
  Transmission Date: 20141002
  Serious: Yes (Hospitalization)
  Sender: FDA-Public Use
  Company Number: US-JNJFOC-20140214103

PATIENT
  Sex: Female

DRUGS (2)
  1. TOPIRAMATE [Suspect]
     Indication: HEADACHE
     Route: 048
  2. TOPIRAMATE [Suspect]
     Indication: HEADACHE
     Route: 048

REACTIONS (2)
  - Malaise [Not Recovered/Not Resolved]
  - Therapeutic response unexpected with drug substitution [Unknown]
